FAERS Safety Report 23743800 (Version 1)
Quarter: 2024Q2

REPORT INFORMATION
  Report Type: Spontaneous
  Country: US (occurrence: US)
  Receive Date: 20240415
  Receipt Date: 20240415
  Transmission Date: 20240716
  Serious: Yes (Other)
  Sender: FDA-Public Use
  Company Number: US-002147023-NVSC2024US073323

PATIENT
  Age: 56 Year
  Sex: Female
  Weight: 67.1 kg

DRUGS (6)
  1. SANDOSTATIN LAR DEPOT [Suspect]
     Active Substance: OCTREOTIDE ACETATE
     Indication: Hyperaldosteronism
     Dosage: 20 MG, EVERY 28 DAYS
     Route: 030
     Dates: start: 201510
  2. SANDOSTATIN LAR DEPOT [Suspect]
     Active Substance: OCTREOTIDE ACETATE
     Indication: Short-bowel syndrome
  3. SANDOSTATIN LAR DEPOT [Suspect]
     Active Substance: OCTREOTIDE ACETATE
  4. SULFASALAZINE [Concomitant]
     Active Substance: SULFASALAZINE
     Indication: Product used for unknown indication
     Dosage: 2 DOSAGE FORM, TID
     Route: 048
  5. VITAMIN D [Concomitant]
     Active Substance: VITAMIN D NOS
     Indication: Product used for unknown indication
     Dosage: 1 DOSAGE FORM, QD
     Route: 048
  6. VITAMIN B12 [Concomitant]
     Active Substance: CYANOCOBALAMIN
     Indication: Product used for unknown indication
     Dosage: 1 ML, TWICE A MONTH
     Route: 030

REACTIONS (15)
  - Nephrolithiasis [Unknown]
  - Adverse event [Recovering/Resolving]
  - Dehydration [Unknown]
  - Oropharyngeal pain [Unknown]
  - Dysphonia [Unknown]
  - Abdominal distension [Unknown]
  - Dyspepsia [Unknown]
  - Throat irritation [Unknown]
  - Nausea [Unknown]
  - Vomiting [Unknown]
  - Hyperglycaemia [Unknown]
  - Fatigue [Unknown]
  - Diarrhoea [Unknown]
  - Viral infection [Unknown]
  - Product dose omission issue [Recovering/Resolving]

NARRATIVE: CASE EVENT DATE: 20240118
